FAERS Safety Report 16949353 (Version 2)
Quarter: 2019Q4

REPORT INFORMATION
  Report Type: Spontaneous
  Country: JP (occurrence: JP)
  Receive Date: 20191023
  Receipt Date: 20191114
  Transmission Date: 20200122
  Serious: Yes (Hospitalization, Other)
  Sender: FDA-Public Use
  Company Number: JP-AMGEN-JPNSP2019173268

PATIENT
  Age: 79 Year
  Sex: Male
  Weight: 62.2 kg

DRUGS (6)
  1. VECTIBIX [Suspect]
     Active Substance: PANITUMUMAB
     Indication: COLON CANCER
     Dosage: 390 MILLIGRAM
     Route: 042
     Dates: start: 20190903
  2. ELPLAT [Concomitant]
     Active Substance: OXALIPLATIN
     Indication: COLON CANCER
     Dosage: 180 MILLIGRAM
     Route: 041
     Dates: start: 20190903
  3. XELODA [Concomitant]
     Active Substance: CAPECITABINE
     Indication: COLON CANCER
     Dosage: 1500 MILLIGRAM, BID
     Route: 048
     Dates: start: 20190903, end: 20190917
  4. ELPLAT [Concomitant]
     Active Substance: OXALIPLATIN
     Dosage: UNK
     Route: 041
     Dates: start: 20191015
  5. XELODA [Concomitant]
     Active Substance: CAPECITABINE
     Dosage: UNK
     Route: 048
     Dates: start: 20191015
  6. ALOXI [Concomitant]
     Active Substance: PALONOSETRON HYDROCHLORIDE
     Indication: PROPHYLAXIS
     Dosage: 0.75 MILLIGRAM
     Route: 041
     Dates: start: 20190903

REACTIONS (2)
  - Diarrhoea [Recovered/Resolved]
  - Small intestine ulcer [Recovering/Resolving]

NARRATIVE: CASE EVENT DATE: 20190908
